FAERS Safety Report 7363742-4 (Version None)
Quarter: 2011Q1

REPORT INFORMATION
  Report Type: 
  Country: None (occurrence: None)
  Receive Date: 20110321
  Receipt Date: 20110317
  Transmission Date: 20110831
  Serious: Yes (Other)
  Sender: FDA-Public Use
  Company Number: DE-ABBOTT-10P-062-0693783-00

PATIENT
  Sex: Female

DRUGS (6)
  1. HUMIRA [Suspect]
     Route: 058
     Dates: start: 20100901
  2. ANALGESIC [Concomitant]
     Indication: PRODUCT USED FOR UNKNOWN INDICATION
  3. TILIDINE [Concomitant]
     Indication: PRODUCT USED FOR UNKNOWN INDICATION
  4. MESALAZIN [Concomitant]
     Indication: PRODUCT USED FOR UNKNOWN INDICATION
  5. OXYCODONE [Concomitant]
     Indication: PRODUCT USED FOR UNKNOWN INDICATION
  6. HUMIRA [Suspect]
     Indication: CROHN'S DISEASE
     Route: 058
     Dates: start: 20100211, end: 20100901

REACTIONS (1)
  - FISTULA [None]
